FAERS Safety Report 5414130-9 (Version None)
Quarter: 2007Q3

REPORT INFORMATION
  Report Type: 
  Country: None (occurrence: None)
  Receive Date: 20070731
  Receipt Date: 20070421
  Transmission Date: 20080115
  Serious: No
  Sender: FDA-Public Use
  Company Number: US200705006974

PATIENT
  Age: 57 Year
  Sex: Female

DRUGS (2)
  1. BYETTA [Suspect]
     Indication: TYPE 2 DIABETES MELLITUS
     Dosage: 5 UG, 2/D, SUBCUTANEOUS  10 UG, 2/D, SUBCUTANEOUS
     Route: 058
     Dates: start: 20060101, end: 20060101
  2. BYETTA [Suspect]
     Indication: TYPE 2 DIABETES MELLITUS
     Dosage: 5 UG, 2/D, SUBCUTANEOUS  10 UG, 2/D, SUBCUTANEOUS
     Route: 058
     Dates: start: 20060101

REACTIONS (4)
  - BLOOD GLUCOSE FLUCTUATION [None]
  - MENISCUS LESION [None]
  - PAIN [None]
  - SWELLING [None]
